FAERS Safety Report 5869838-8 (Version None)
Quarter: 2008Q3

REPORT INFORMATION
  Report Type: 
  Country: None (occurrence: None)
  Receive Date: 20080904
  Receipt Date: 20080825
  Transmission Date: 20090109
  Serious: Yes (Hospitalization)
  Sender: FDA-Public Use
  Company Number: CL-PFIZER INC-2008071669

PATIENT
  Age: 45 Year
  Sex: Male

DRUGS (1)
  1. CELEBRA [Suspect]
     Indication: BACK PAIN
     Dosage: DAILY DOSE:600MG
     Route: 048

REACTIONS (1)
  - RENAL INFARCT [None]
